FAERS Safety Report 17975106 (Version 3)
Quarter: 2021Q2

REPORT INFORMATION
  Report Type: Spontaneous
  Country: US (occurrence: US)
  Receive Date: 20200702
  Receipt Date: 20210405
  Transmission Date: 20210717
  Serious: Yes (Other)
  Sender: FDA-Public Use
  Company Number: US-009507513-2006USA009564

PATIENT
  Age: 26 Day
  Sex: Male
  Weight: 4.1 kg

DRUGS (13)
  1. ROCURONIUM BROMIDE. [Concomitant]
     Active Substance: ROCURONIUM BROMIDE
     Indication: NEUROMUSCULAR BLOCKADE
     Dosage: 0.98 MG/KG, 4 MG
     Route: 042
     Dates: start: 20191212
  2. CEFAZOLIN [Concomitant]
     Active Substance: CEFAZOLIN
     Indication: ANTIBIOTIC PROPHYLAXIS
     Dosage: 120 MILLIGRAM, ONCE
     Route: 042
     Dates: start: 20191212, end: 20191212
  3. ACETAMINOPHEN. [Concomitant]
     Active Substance: ACETAMINOPHEN
     Indication: ANALGESIC THERAPY
     Dosage: 40 MILLIGRAM, ONCE
     Route: 042
     Dates: start: 20191212, end: 20191212
  4. FENTANYL. [Concomitant]
     Active Substance: FENTANYL
     Indication: INDUCTION OF ANAESTHESIA
     Dosage: 5 MICROGRAM (1.22 MICRO?G/KG)
     Route: 042
     Dates: start: 20191212, end: 20191212
  5. ROCURONIUM BROMIDE. [Concomitant]
     Active Substance: ROCURONIUM BROMIDE
     Dosage: 0.49 MG/KG, 2MG
     Route: 042
     Dates: start: 20191212
  6. BRIDION [Suspect]
     Active Substance: SUGAMMADEX
     Dosage: 3.9 MG/KG, 16 MG
     Route: 042
     Dates: start: 20191212, end: 20191212
  7. SEVOFLURANE. [Concomitant]
     Active Substance: SEVOFLURANE
     Indication: INDUCTION OF ANAESTHESIA
     Dosage: UNK
     Dates: start: 20191212, end: 20191212
  8. ROCURONIUM BROMIDE. [Concomitant]
     Active Substance: ROCURONIUM BROMIDE
     Dosage: 0.98 MG/KG, 4 MG
     Route: 042
     Dates: start: 20191212
  9. NEOSTIGMINE METHYLSULFATE. [Concomitant]
     Active Substance: NEOSTIGMINE METHYLSULFATE
     Indication: NEUROMUSCULAR BLOCKADE REVERSAL
     Dosage: 0.3 MILLIGRAM, ONCE; 0.07 MG/KG
     Route: 042
     Dates: start: 20191212, end: 20191212
  10. NITROUS OXIDE. [Concomitant]
     Active Substance: NITROUS OXIDE
     Indication: INDUCTION OF ANAESTHESIA
     Dosage: UNK
     Dates: start: 20191212, end: 20191212
  11. BRIDION [Suspect]
     Active Substance: SUGAMMADEX
     Indication: NEUROMUSCULAR BLOCKADE REVERSAL
     Dosage: 4.88 MG/KG, 20 MG
     Route: 042
     Dates: start: 20191212
  12. ROCURONIUM BROMIDE. [Concomitant]
     Active Substance: ROCURONIUM BROMIDE
     Dosage: 0.24 MG/KG, 1MG
     Route: 042
     Dates: start: 20191212, end: 20191212
  13. GLYCOPYRROLATE. [Concomitant]
     Active Substance: GLYCOPYRROLATE
     Indication: NEUROMUSCULAR BLOCKADE REVERSAL
     Dosage: 0.1 MILLIGRAM, ONCE; 0.02 MG/KG
     Route: 042
     Dates: start: 20191212, end: 20191212

REACTIONS (3)
  - Off label use [Unknown]
  - Respiratory distress [Recovered/Resolved]
  - Recurrence of neuromuscular blockade [Recovered/Resolved]

NARRATIVE: CASE EVENT DATE: 20191212
